FAERS Safety Report 23508529 (Version 3)
Quarter: 2025Q2

REPORT INFORMATION
  Report Type: Spontaneous
  Country: US (occurrence: US)
  Receive Date: 20240209
  Receipt Date: 20250619
  Transmission Date: 20250717
  Serious: No
  Sender: KYOWA
  Company Number: US-KYOWAKIRIN-2024KK002092

PATIENT

DRUGS (6)
  1. CRYSVITA [Suspect]
     Active Substance: BUROSUMAB-TWZA
     Indication: Hereditary hypophosphataemic rickets
     Dosage: 70 MG, 1X/4 WEEKS
     Route: 058
     Dates: start: 201904
  2. CRYSVITA [Suspect]
     Active Substance: BUROSUMAB-TWZA
     Indication: Rickets
     Dosage: 80 MG, 1X/4 WEEKS
     Route: 058
     Dates: start: 201904
  3. CRYSVITA [Suspect]
     Active Substance: BUROSUMAB-TWZA
     Dosage: 10 MG, 1X/4 WEEKS
     Route: 058
     Dates: start: 201905
  4. CRYSVITA [Suspect]
     Active Substance: BUROSUMAB-TWZA
     Indication: Hereditary hypophosphataemic rickets
     Dosage: 70 MG, 1X/4 WEEKS
     Route: 058
     Dates: start: 201904
  5. CRYSVITA [Suspect]
     Active Substance: BUROSUMAB-TWZA
     Indication: Rickets
     Dosage: 80 MG, 1X/4 WEEKS
     Route: 058
     Dates: start: 201904
  6. CRYSVITA [Suspect]
     Active Substance: BUROSUMAB-TWZA
     Dosage: 60 MG, 1X/4 WEEKS
     Route: 058
     Dates: start: 201905

REACTIONS (3)
  - Diplopia [Unknown]
  - Depression [Unknown]
  - Therapy interrupted [Unknown]
